FAERS Safety Report 9803292 (Version 1)
Quarter: 2014Q1

REPORT INFORMATION
  Report Type: Spontaneous
  Country: US (occurrence: None)
  Receive Date: 20140107
  Receipt Date: 20140107
  Transmission Date: 20141002
  Serious: Yes (Life-Threatening, Hospitalization)
  Sender: FDA-Public Use
  Company Number: None

PATIENT
  Age: 47 Year
  Sex: Female
  Weight: 62.6 kg

DRUGS (4)
  1. BEYAZ [Suspect]
     Indication: CONTRACEPTION
     Dosage: 1 PILL
     Route: 048
     Dates: start: 20120701, end: 20120806
  2. DAILY VITAMIN FOR WOMEN [Concomitant]
  3. BABY ASPIRIN [Concomitant]
  4. FLUOXETINE [Concomitant]

REACTIONS (1)
  - Pulmonary thrombosis [None]
